FAERS Safety Report 4630856-9 (Version None)
Quarter: 2005Q2

REPORT INFORMATION
  Report Type: 
  Country: None (occurrence: None)
  Receive Date: 20050406
  Receipt Date: 20050322
  Transmission Date: 20051028
  Serious: Yes (Death, Hospitalization)
  Sender: FDA-Public Use
  Company Number: 2005000588

PATIENT
  Age: 74 Year
  Sex: Male

DRUGS (13)
  1. TARCEVA [Suspect]
     Indication: NON-SMALL CELL LUNG CANCER
     Dosage: 150 MG (QD), ORAL
     Route: 048
     Dates: start: 20050127, end: 20050301
  2. LAMOTRIGINE [Concomitant]
  3. WARFARIN SODIUM [Concomitant]
  4. PRILOSEC [Concomitant]
  5. PAXIL [Concomitant]
  6. PERCOCET [Concomitant]
  7. MEGACE [Concomitant]
  8. LIPITOR [Concomitant]
  9. SYNTHROID [Concomitant]
  10. NEURONTIN [Concomitant]
  11. FLORINEF [Concomitant]
  12. MECLIZINE [Concomitant]
  13. HYCODAN [Concomitant]

REACTIONS (2)
  - INTERSTITIAL LUNG DISEASE [None]
  - ORTHOSTATIC HYPOTENSION [None]
